FAERS Safety Report 4537826-X (Version None)
Quarter: 2004Q4

REPORT INFORMATION
  Report Type: 
  Country: None (occurrence: None)
  Receive Date: 20041224
  Receipt Date: 20041215
  Transmission Date: 20050328
  Serious: Yes (Other)
  Sender: FDA-Public Use
  Company Number: JP-MERCK-0412USA02381

PATIENT
  Age: 48 Year
  Sex: Male

DRUGS (3)
  1. CRIXIVAN [Suspect]
     Indication: HIV INFECTION
     Route: 048
     Dates: start: 20020601
  2. DIDANOSINE [Suspect]
     Indication: HIV INFECTION
     Route: 048
     Dates: start: 20020601
  3. ZERIT [Suspect]
     Indication: HIV INFECTION
     Route: 065
     Dates: start: 20020601

REACTIONS (16)
  - DEPRESSED LEVEL OF CONSCIOUSNESS [None]
  - EATING DISORDER [None]
  - GLUCOSE TOLERANCE IMPAIRED [None]
  - HEPATIC FAILURE [None]
  - HEPATIC FUNCTION ABNORMAL [None]
  - HYPERVENTILATION [None]
  - HYPOREFLEXIA [None]
  - LACTIC ACIDOSIS [None]
  - MALAISE [None]
  - MULTI-ORGAN FAILURE [None]
  - PAIN IN EXTREMITY [None]
  - PALLANAESTHESIA [None]
  - RENAL FAILURE [None]
  - RENAL IMPAIRMENT [None]
  - SENSORY DISTURBANCE [None]
  - URINE URIC ACID INCREASED [None]
